FAERS Safety Report 18522116 (Version 1)
Quarter: 2020Q4

REPORT INFORMATION
  Report Type: Spontaneous
  Country: US (occurrence: US)
  Receive Date: 20201119
  Receipt Date: 20201119
  Transmission Date: 20210114
  Serious: Yes (Hospitalization)
  Sender: FDA-Public Use
  Company Number: US-009507513-2011USA007013

PATIENT
  Age: 72 Year
  Sex: Male

DRUGS (8)
  1. PROSCAR [Suspect]
     Active Substance: FINASTERIDE
     Dosage: UNK
     Route: 048
  2. APOKYN [Suspect]
     Active Substance: APOMORPHINE HYDROCHLORIDE
     Dosage: UNK
  3. COZAAR [Suspect]
     Active Substance: LOSARTAN POTASSIUM
     Dosage: UNK
     Route: 048
  4. RYTARY [Suspect]
     Active Substance: CARBIDOPA\LEVODOPA
     Dosage: UNK
  5. PANTOPRAZOLE [Suspect]
     Active Substance: PANTOPRAZOLE
     Dosage: UNK
  6. COLACE [Suspect]
     Active Substance: DOCUSATE SODIUM
     Dosage: UNK
  7. MECLIZINE [Suspect]
     Active Substance: MECLIZINE HYDROCHLORIDE
     Dosage: UNK
  8. ASPIRIN. [Suspect]
     Active Substance: ASPIRIN
     Dosage: UNK

REACTIONS (7)
  - Vertigo [Not Recovered/Not Resolved]
  - Nausea [Not Recovered/Not Resolved]
  - Somnolence [Unknown]
  - Hypoaesthesia [Unknown]
  - Hypoaesthesia [Unknown]
  - Lacrimation increased [Unknown]
  - Constipation [Not Recovered/Not Resolved]

NARRATIVE: CASE EVENT DATE: 20201009
